FAERS Safety Report 5051217-7 (Version None)
Quarter: 2006Q3

REPORT INFORMATION
  Report Type: 
  Country: None (occurrence: None)
  Receive Date: 20060714
  Receipt Date: 20060707
  Transmission Date: 20061208
  Serious: Yes (Other)
  Sender: FDA-Public Use
  Company Number: PHEH2006US08736

PATIENT
  Age: 82 Year
  Sex: Female

DRUGS (4)
  1. DIOVAN [Suspect]
     Indication: HYPERTENSION
     Dosage: 40MG, QD
     Route: 048
     Dates: start: 20060411, end: 20060501
  2. DIGOXIN [Concomitant]
  3. LIPITOR [Concomitant]
  4. TYLENOL [Concomitant]

REACTIONS (3)
  - DIZZINESS [None]
  - HEART RATE INCREASED [None]
  - NAUSEA [None]
